FAERS Safety Report 4643194-5 (Version None)
Quarter: 2005Q2

REPORT INFORMATION
  Report Type: 
  Country: None (occurrence: None)
  Receive Date: 20050422
  Receipt Date: 20041213
  Transmission Date: 20051028
  Serious: Yes (Life-Threatening, Hospitalization, Disabling, Other)
  Sender: FDA-Public Use
  Company Number: US-MERCK-0412USA01532

PATIENT
  Age: 75 Year
  Sex: Female
  Weight: 64 kg

DRUGS (5)
  1. VIOXX [Suspect]
     Indication: OSTEOARTHRITIS
     Route: 048
     Dates: start: 20020905, end: 20021011
  2. VIOXX [Suspect]
     Route: 048
     Dates: start: 20020830, end: 20020904
  3. SYNTHROID [Concomitant]
     Route: 048
     Dates: start: 20010411
  4. LASIX [Concomitant]
     Route: 048
     Dates: start: 20020814
  5. PREMARIN [Concomitant]
     Route: 048
     Dates: start: 19910101, end: 20021011

REACTIONS (7)
  - ARTERIOSCLEROSIS [None]
  - CARDIAC FAILURE CONGESTIVE [None]
  - CEREBROVASCULAR ACCIDENT [None]
  - CORONARY ARTERY ATHEROSCLEROSIS [None]
  - HYPERTENSION [None]
  - SINUSITIS [None]
  - VENTRICULAR HYPERTROPHY [None]
